FAERS Safety Report 14613181 (Version 1)
Quarter: 2018Q1

REPORT INFORMATION
  Report Type: Spontaneous
  Country: BR (occurrence: BR)
  Receive Date: 20180308
  Receipt Date: 20180308
  Transmission Date: 20180509
  Serious: Yes (Other)
  Sender: FDA-Public Use
  Company Number: BR-FRESENIUS KABI-FK201802680

PATIENT
  Age: 23 Year
  Sex: Male
  Weight: 80 kg

DRUGS (9)
  1. HYDROCORTISONE. [Concomitant]
     Active Substance: HYDROCORTISONE
     Indication: OROPHARYNGEAL PAIN
  2. CLINDAMYCIN KABI 150 MG / ML [Suspect]
     Active Substance: CLINDAMYCIN PHOSPHATE
     Indication: OROPHARYNGEAL PAIN
  3. ROCEFIN (CEFTRIAXONE) [Concomitant]
     Indication: OROPHARYNGEAL PAIN
  4. CLINDAMYCIN KABI 150 MG / ML [Suspect]
     Active Substance: CLINDAMYCIN PHOSPHATE
     Indication: PYREXIA
     Route: 042
     Dates: start: 20180127, end: 20180129
  5. CLINDAMYCIN KABI 150 MG / ML [Suspect]
     Active Substance: CLINDAMYCIN PHOSPHATE
     Indication: SEPSIS
  6. ROCEFIN (CEFTRIAXONE) [Concomitant]
     Indication: PYREXIA
     Route: 065
     Dates: start: 20180127
  7. HYDROCORTISONE. [Concomitant]
     Active Substance: HYDROCORTISONE
     Indication: SEPSIS
  8. ROCEFIN (CEFTRIAXONE) [Concomitant]
     Indication: SEPSIS
  9. HYDROCORTISONE. [Concomitant]
     Active Substance: HYDROCORTISONE
     Indication: PYREXIA
     Route: 065
     Dates: start: 20180127

REACTIONS (3)
  - Hyperaemia [Recovered/Resolved]
  - Skin lesion [Recovered/Resolved]
  - Rash erythematous [Recovered/Resolved]

NARRATIVE: CASE EVENT DATE: 20180129
